FAERS Safety Report 19923345 (Version 2)
Quarter: 2021Q4

REPORT INFORMATION
  Report Type: Spontaneous
  Country: US (occurrence: None)
  Receive Date: 20211005
  Receipt Date: 20211117
  Transmission Date: 20220303
  Serious: No
  Sender: FDA-Public Use
  Company Number: 2021A733786

PATIENT
  Age: 20298 Day
  Sex: Female
  Weight: 79.8 kg

DRUGS (1)
  1. BYDUREON BCISE [Suspect]
     Active Substance: EXENATIDE
     Indication: Glycosylated haemoglobin increased
     Route: 065
     Dates: start: 202007

REACTIONS (3)
  - Injection site haemorrhage [Unknown]
  - Injection site extravasation [Unknown]
  - Incorrect dose administered by device [Unknown]

NARRATIVE: CASE EVENT DATE: 20210920
